FAERS Safety Report 11938316 (Version 1)
Quarter: 2016Q1

REPORT INFORMATION
  Report Type: Spontaneous
  Country: US (occurrence: None)
  Receive Date: 20160120
  Receipt Date: 20160120
  Transmission Date: 20160526
  Serious: Yes (Hospitalization)
  Sender: FDA-Public Use
  Company Number: None

PATIENT
  Age: 59 Year
  Sex: Female
  Weight: 67.7 kg

DRUGS (14)
  1. HARVONI [Suspect]
     Active Substance: LEDIPASVIR\SOFOSBUVIR
     Indication: HEPATITIS C
     Dosage: 90/MG/400MG QD PO
     Route: 048
     Dates: start: 20150721, end: 20151013
  2. MULTIVITAMIN [Concomitant]
     Active Substance: VITAMINS
  3. MYCOPHENOLATE [Concomitant]
     Active Substance: MYCOPHENOLIC ACID
  4. OSCAL [Concomitant]
     Active Substance: CALCIUM CARBONATE
  5. PREDNISONE. [Concomitant]
     Active Substance: PREDNISONE
  6. BACTRIM [Concomitant]
     Active Substance: SULFAMETHOXAZOLE\TRIMETHOPRIM
  7. MAGNESIUM [Concomitant]
     Active Substance: MAGNESIUM
  8. RIBAVIRIN 600MG [Suspect]
     Active Substance: RIBAVIRIN
     Indication: HEPATITIS C
     Route: 048
     Dates: start: 20150721, end: 20151013
  9. TACROLIMUS. [Concomitant]
     Active Substance: TACROLIMUS
  10. URSODIOL. [Concomitant]
     Active Substance: URSODIOL
  11. TOPROL XL [Concomitant]
     Active Substance: METOPROLOL SUCCINATE
  12. VALCYTE [Concomitant]
     Active Substance: VALGANCICLOVIR HYDROCHLORIDE
  13. PANTOPRAZOLE [Concomitant]
     Active Substance: PANTOPRAZOLE SODIUM
  14. BUMETANIDE. [Concomitant]
     Active Substance: BUMETANIDE

REACTIONS (3)
  - Blood bilirubin increased [None]
  - Liver function test increased [None]
  - Bile duct stenosis [None]

NARRATIVE: CASE EVENT DATE: 20150916
